FAERS Safety Report 10373700 (Version 1)
Quarter: 2014Q1

REPORT INFORMATION
  Report Type: Spontaneous
  Country: US (occurrence: None)
  Receive Date: 20140306
  Receipt Date: 20140306
  Transmission Date: 20141002
  Serious: Yes (Other)
  Sender: FDA-Public Use
  Company Number: 163-21880-13083693

PATIENT
  Age: 74 Year
  Sex: Male

DRUGS (9)
  1. REVLIMID (LENALIDOMIDE) (25 MILLIGRAM, CAPSULES) [Suspect]
     Indication: PLASMA CELL MYELOMA
     Route: 048
     Dates: start: 20130731
  2. PANTOPRAZOLE SODIUM (PANTOPRAZOLE SODIUM)(TABLETS) [Concomitant]
  3. PREDNISONE (PREDNISONE)(TABLETS) [Concomitant]
  4. DEXAMETHASONE (DEXAMETHASONE) (TABLETS) [Concomitant]
  5. LEVOFLOXACIN (LEVOFLOXACIN) (TABLETS) [Concomitant]
  6. CRESTOR (ROSUVASTATIN) (TABLETS) [Concomitant]
  7. CALCIUM _ VITAMIN D (LEKOVIT CA) (TABLETS) [Concomitant]
  8. ASPIRINE (ACETYLSALICYLIC ACID) (ENTERIC-COATED TABLET) [Concomitant]
  9. VITAMIN C (ASCORBIC ACID) [Concomitant]

REACTIONS (2)
  - Weight increased [None]
  - Platelet count decreased [None]
